FAERS Safety Report 24625466 (Version 1)
Quarter: 2024Q4

REPORT INFORMATION
  Report Type: Spontaneous
  Country: US (occurrence: None)
  Receive Date: 20241115
  Receipt Date: 20241115
  Transmission Date: 20250115
  Serious: Yes (Hospitalization)
  Sender: Public
  Company Number: None

PATIENT
  Age: 78 Year
  Sex: Male

DRUGS (2)
  1. ASPIRIN [Suspect]
     Active Substance: ASPIRIN
     Indication: Transient ischaemic attack
     Dosage: FREQUENCY : DAILY;?
     Route: 048
  2. CLOPIDOGREL BISULFATE [Suspect]
     Active Substance: CLOPIDOGREL BISULFATE
     Indication: Transient ischaemic attack
     Dosage: FREQUENCY : DAILY;?
     Route: 048
     Dates: start: 20241005, end: 20241015

REACTIONS (8)
  - Anaemia [None]
  - Haemorrhage [None]
  - Transcatheter aortic valve implantation [None]
  - Post procedural complication [None]
  - Gastric varices haemorrhage [None]
  - Haemolysis [None]
  - Myelosuppression [None]
  - Therapy interrupted [None]

NARRATIVE: CASE EVENT DATE: 20241015
